FAERS Safety Report 7921566-0 (Version None)
Quarter: 2011Q4

REPORT INFORMATION
  Report Type: 
  Country: None (occurrence: None)
  Receive Date: 20111117
  Receipt Date: 20111107
  Transmission Date: 20120403
  Serious: Yes (Other)
  Sender: FDA-Public Use
  Company Number: PHHY2010JP58113

PATIENT
  Sex: Male

DRUGS (11)
  1. TASIGNA [Suspect]
     Indication: CHRONIC MYELOID LEUKAEMIA
     Dosage: 800 MG, UNK
     Route: 048
     Dates: start: 20100217
  2. AMARYL [Concomitant]
     Indication: TYPE 1 DIABETES MELLITUS
     Dosage: 2 MG, UNK
     Route: 048
     Dates: end: 20100315
  3. INSULIN DETEMIR [Concomitant]
     Indication: TYPE 1 DIABETES MELLITUS
     Dosage: UNK
     Route: 058
     Dates: start: 20070318
  4. LASIX [Concomitant]
     Dosage: 80 MG, UNK
     Route: 048
     Dates: start: 20070701, end: 20100412
  5. LEVEMIR [Concomitant]
     Indication: TYPE 1 DIABETES MELLITUS
     Dosage: 12 IU
     Dates: start: 20100812, end: 20110211
  6. FAMOTIDINE [Concomitant]
     Dosage: 40 MG
     Route: 048
     Dates: start: 20070701
  7. CEFAZOLIN SODIUM [Concomitant]
     Dosage: 2 DF, UNK
     Route: 048
     Dates: start: 20070701
  8. ALDACTONE [Concomitant]
     Dosage: 25 MG, UNK
     Route: 048
     Dates: start: 20070701, end: 20100412
  9. CEFAZOLIN SODIUM [Concomitant]
     Dosage: 3 DF
     Route: 048
  10. ALLOPURINOL [Concomitant]
     Dosage: 100 MG, UNK
     Route: 048
     Dates: start: 20070701
  11. NOVORAPID [Concomitant]
     Indication: TYPE 1 DIABETES MELLITUS
     Dosage: 15 IU
     Dates: start: 20100812, end: 20110211

REACTIONS (5)
  - LIPASE INCREASED [None]
  - CEREBRAL INFARCTION [None]
  - DIABETES MELLITUS INADEQUATE CONTROL [None]
  - HAEMOGLOBIN DECREASED [None]
  - BLOOD GLUCOSE INCREASED [None]
